FAERS Safety Report 5369847-1 (Version None)
Quarter: 2007Q2

REPORT INFORMATION
  Report Type: 
  Country: None (occurrence: None)
  Receive Date: 20070621
  Receipt Date: 20070606
  Transmission Date: 20071010
  Serious: Yes (Death)
  Sender: FDA-Public Use
  Company Number: 2007001042

PATIENT
  Age: 61 Year
  Sex: Female

DRUGS (2)
  1. TARCEVA [Suspect]
     Indication: LUNG NEOPLASM MALIGNANT
     Dosage: 150 MG (QD), ORAL
     Route: 048
     Dates: start: 20070411
  2. DOCETAXEL            (DOCETAXEL) [Concomitant]

REACTIONS (3)
  - ASTHENIA [None]
  - GASTROINTESTINAL DISORDER [None]
  - PNEUMONIA [None]
